FAERS Safety Report 9299942 (Version 1)
Quarter: 2013Q1

REPORT INFORMATION
  Report Type: Spontaneous
  Country: US (occurrence: None)
  Receive Date: 20130107
  Receipt Date: 20130107
  Transmission Date: 20140127
  Serious: Yes (Hospitalization, Other)
  Sender: FDA-Public Use
  Company Number: PHEH2012US020724

PATIENT
  Age: 43 Year
  Sex: Female
  Weight: 69.4 kg

DRUGS (1)
  1. GILENYA [Suspect]
     Indication: MULTIPLE SCLEROSIS
     Route: 048
     Dates: start: 20121019, end: 20121019

REACTIONS (3)
  - Bradycardia [None]
  - Fatigue [None]
  - Dizziness [None]
